FAERS Safety Report 7121282-1 (Version None)
Quarter: 2010Q4

REPORT INFORMATION
  Report Type: 
  Country: None (occurrence: None)
  Receive Date: 20101122
  Receipt Date: 20101122
  Transmission Date: 20110411
  Serious: Yes (Hospitalization)
  Sender: FDA-Public Use
  Company Number: None

PATIENT
  Sex: Male
  Weight: 71.6683 kg

DRUGS (5)
  1. BENDAMUSTINE 120MG/M2 CEPHALON [Suspect]
     Indication: SMALL CELL LUNG CANCER STAGE UNSPECIFIED
     Dosage: BENDAMUSTINE 225MG DAYS 1 IV
     Route: 042
     Dates: start: 20101103
  2. IRINOTECAN 150MG/M2 PFIZER [Suspect]
     Dosage: IRINOTECAN 150MG/M2 DAYS 1, 2, AND 3 IV
     Route: 042
     Dates: start: 20101101
  3. IRINOTECAN 150MG/M2 PFIZER [Suspect]
     Dosage: IRINOTECAN 150MG/M2 DAYS 1, 2, AND 3 IV
     Route: 042
     Dates: start: 20101103
  4. IRINOTECAN 150MG/M2 PFIZER [Suspect]
     Dosage: IRINOTECAN 150MG/M2 DAYS 1, 2, AND 3 IV
     Route: 042
     Dates: start: 20101104
  5. .. [Concomitant]

REACTIONS (8)
  - BLOOD CREATININE INCREASED [None]
  - DECREASED APPETITE [None]
  - DIARRHOEA [None]
  - DRUG TOXICITY [None]
  - FATIGUE [None]
  - NAUSEA [None]
  - SINUS BRADYCARDIA [None]
  - VOMITING [None]
